FAERS Safety Report 23609625 (Version 2)
Quarter: 2024Q1

REPORT INFORMATION
  Report Type: Report from Study
  Country: CA (occurrence: CA)
  Receive Date: 20240308
  Receipt Date: 20240313
  Transmission Date: 20240410
  Serious: Yes (Hospitalization, Other)
  Sender: FDA-Public Use
  Company Number: CA-SA-SAC20230511000306

PATIENT
  Age: 26 Year
  Sex: Male

DRUGS (54)
  1. BELUMOSUDIL MESYLATE [Suspect]
     Active Substance: BELUMOSUDIL MESYLATE
     Indication: Chronic graft versus host disease
     Dosage: 200 MG, BID
     Route: 048
     Dates: start: 20230505
  2. BELUMOSUDIL MESYLATE [Suspect]
     Active Substance: BELUMOSUDIL MESYLATE
     Dosage: 200 MG, QD
     Route: 048
  3. FLUDARABINE PHOSPHATE [Suspect]
     Active Substance: FLUDARABINE PHOSPHATE
     Dosage: UNK
  4. BUSULFAN [Suspect]
     Active Substance: BUSULFAN
     Dosage: UNK
  5. ACYCLOVIR [Concomitant]
     Active Substance: ACYCLOVIR
     Dosage: 800 MG, BID
     Route: 048
  6. AMIKACIN [Concomitant]
     Active Substance: AMIKACIN
     Indication: Mycobacterium avium complex infection
     Dosage: 750 MG, QD
     Route: 042
     Dates: end: 20230616
  7. AMIKACIN [Concomitant]
     Active Substance: AMIKACIN
     Dosage: 750MG, IV EVERY 24HRS
     Route: 042
  8. ZITHROMAX [Concomitant]
     Active Substance: AZITHROMYCIN DIHYDRATE
     Indication: Mycobacterium avium complex infection
     Dosage: 500 MG, QD
  9. ZITHROMAX [Concomitant]
     Active Substance: AZITHROMYCIN DIHYDRATE
     Dosage: 2 DF, QD
  10. FLUTICASONE PROPIONATE\SALMETEROL XINAFOATE [Concomitant]
     Active Substance: FLUTICASONE PROPIONATE\SALMETEROL XINAFOATE
     Dosage: 2 DF, BID
     Route: 055
  11. ISAVUCONAZOLE [Concomitant]
     Active Substance: ISAVUCONAZOLE
     Indication: Aspergillus infection
     Dosage: 200 MG, QD
  12. ISAVUCONAZOLE [Concomitant]
     Active Substance: ISAVUCONAZOLE
     Indication: Mycobacterium fortuitum infection
     Dosage: 200MG, QD
  13. COTAZYM ECS [AMYLASE;LIPASE;PROTEASE NOS] [Concomitant]
     Dosage: 1 DF
  14. PANTOPRAZOLE SODIUM [Concomitant]
     Active Substance: PANTOPRAZOLE SODIUM
     Dosage: 40 MG, QD
     Route: 048
  15. METOCLOPRAMIDE HYDROCHLORIDE [Concomitant]
     Active Substance: METOCLOPRAMIDE HYDROCHLORIDE
     Dosage: 10 MG, TID, BEFORE MEALS PRN
  16. ATIVAN [Concomitant]
     Active Substance: LORAZEPAM
     Dosage: 0.5 MG, BID
  17. MIRTAZAPINE [Concomitant]
     Active Substance: MIRTAZAPINE
     Dosage: 30 MG, HS
  18. MIRTAZAPINE [Concomitant]
     Active Substance: MIRTAZAPINE
     Dosage: 45 MG, HS
  19. MIRTAZAPINE [Concomitant]
     Active Substance: MIRTAZAPINE
     Dosage: 30MG NIGHTLY
  20. PREDNISONE [Concomitant]
     Active Substance: PREDNISONE
     Dosage: 7.5 UNK, QD
     Route: 048
  21. PREDNISONE [Concomitant]
     Active Substance: PREDNISONE
     Dosage: 7.5 ORAL DAILY
     Route: 048
  22. ALBUTEROL [Concomitant]
     Active Substance: ALBUTEROL
     Dosage: 2 DF, PRN
     Route: 055
  23. ALBUTEROL [Concomitant]
     Active Substance: ALBUTEROL
     Dosage: 2 PUSS
  24. SODIUM BICARBONATE [Concomitant]
     Active Substance: SODIUM BICARBONATE
     Dosage: 500 MG
  25. SODIUM BICARBONATE [Concomitant]
     Active Substance: SODIUM BICARBONATE
  26. SULFAMETHOXAZOLE [Concomitant]
     Active Substance: SULFAMETHOXAZOLE
     Dosage: 1 DF, QOD (EVERY MON, WED AND FRI)
  27. SULFAMETHOXAZOLE [Concomitant]
     Active Substance: SULFAMETHOXAZOLE
     Dosage: 1 TB EVERY MON, WED FRI
  28. SPIRIVA [Concomitant]
     Active Substance: TIOTROPIUM BROMIDE MONOHYDRATE
     Dosage: 2 DF, QD (2 PUFFS DAILY)
  29. SPIRIVA [Concomitant]
     Active Substance: TIOTROPIUM BROMIDE MONOHYDRATE
     Dosage: 2 PUFFS DAILY
  30. AVELOX [Concomitant]
     Active Substance: MOXIFLOXACIN HYDROCHLORIDE
     Indication: Mycobacterium avium complex infection
     Dosage: 400 MG, QD
     Route: 048
     Dates: start: 202212
  31. COTAZYM-65 B [Concomitant]
     Dosage: 5 MG, QD
  32. TIOTROPIUM BROMIDE [Concomitant]
     Active Substance: TIOTROPIUM BROMIDE
     Dosage: 2 DF, QD
     Route: 055
  33. TIOTROPIUM BROMIDE [Concomitant]
     Active Substance: TIOTROPIUM BROMIDE
  34. AMBISOME [Concomitant]
     Active Substance: AMPHOTERICIN B
     Indication: Aspergillus infection
     Dosage: UNK
  35. AMBISOME [Concomitant]
     Active Substance: AMPHOTERICIN B
     Indication: Mycobacterium fortuitum infection
  36. AMPHOTERICIN B [Concomitant]
     Active Substance: AMPHOTERICIN B
     Dosage: 5 MG/KG, QD
     Route: 042
  37. SINGULAIR [Concomitant]
     Active Substance: MONTELUKAST SODIUM
     Dosage: 10 MG, HS
     Route: 048
  38. ZOFRAN [Concomitant]
     Active Substance: ONDANSETRON HYDROCHLORIDE
     Dosage: 8 MG, Q8H, PRN
     Route: 048
  39. SODIUM CHLORIDE [Concomitant]
     Active Substance: SODIUM CHLORIDE
     Dosage: 50 MG, QD
     Route: 042
  40. SEPTRA DS [Concomitant]
     Active Substance: SULFAMETHOXAZOLE\TRIMETHOPRIM
     Dosage: 1 DF, TIW
     Route: 048
  41. VFEND [Concomitant]
     Active Substance: VORICONAZOLE
     Dosage: 200 MG, BID
     Route: 048
  42. ETHAMBUTOL [Concomitant]
     Active Substance: ETHAMBUTOL HYDROCHLORIDE
     Indication: Mycobacterium avium complex infection
     Dosage: UNK
  43. LORAZEPAM [Concomitant]
     Active Substance: LORAZEPAM
     Dosage: 0.5 MG, BID
  44. LORAZEPAM [Concomitant]
     Active Substance: LORAZEPAM
     Dosage: 0.5MG 2 X DAILY
  45. METOCLOPRAMIDE [Concomitant]
     Active Substance: METOCLOPRAMIDE
     Dosage: 10 MG, TID
  46. METOCLOPRAMIDE [Concomitant]
     Active Substance: METOCLOPRAMIDE
     Dosage: 10MG 3TIMES DAILY
  47. MOXIFLOXACIN [Concomitant]
     Active Substance: MOXIFLOXACIN
     Dosage: 400 MG, QD
  48. MOXIFLOXACIN [Concomitant]
     Active Substance: MOXIFLOXACIN
     Dosage: 400MG, QD
  49. TIOTROPIUM BROMIDE [Concomitant]
     Active Substance: TIOTROPIUM BROMIDE
     Dosage: 2 DF, QD
  50. VITAMIN D3 [Concomitant]
     Active Substance: CHOLECALCIFEROL
     Dosage: 200 UNK, QD
     Route: 048
  51. VITAMIN D3 [Concomitant]
     Active Substance: CHOLECALCIFEROL
     Dosage: 2000 ORAL DAILY
     Route: 048
  52. AZITHROMYCIN [Concomitant]
     Active Substance: AZITHROMYCIN
     Dosage: 500 MG, QD
  53. FLUTICASONE FUROATE\SALMETEROL XINAFOATE [Concomitant]
     Active Substance: FLUTICASONE FUROATE\SALMETEROL XINAFOATE
     Dosage: 2 DF, BID
     Route: 065
  54. COTAZYM [AMYLASE;LIPASE;PROTEASE NOS] [Concomitant]
     Dosage: 1 DF

REACTIONS (4)
  - Respiratory failure [Recovering/Resolving]
  - Lung disorder [Recovering/Resolving]
  - Gastrooesophageal reflux disease [Not Recovered/Not Resolved]
  - Dyspnoea [Not Recovered/Not Resolved]

NARRATIVE: CASE EVENT DATE: 20230101
